FAERS Safety Report 5596409-3 (Version None)
Quarter: 2008Q1

REPORT INFORMATION
  Report Type: 
  Country: None (occurrence: None)
  Receive Date: 20080118
  Receipt Date: 20080114
  Transmission Date: 20080703
  Serious: Yes (Other)
  Sender: FDA-Public Use
  Company Number: US-PFIZER INC-2006134541

PATIENT
  Sex: Male
  Weight: 97.5 kg

DRUGS (6)
  1. CELEBREX [Suspect]
     Route: 048
  2. BEXTRA [Suspect]
     Indication: PAIN MANAGEMENT
     Route: 048
     Dates: start: 20021029, end: 20030103
  3. VIOXX [Suspect]
     Indication: ARTHRITIS
     Route: 048
  4. HYDROCODONE [Concomitant]
     Indication: PAIN
     Dates: start: 20020409, end: 20040930
  5. COUMADIN [Concomitant]
     Indication: THROMBOSIS
     Dates: start: 20010911
  6. COUMADIN [Concomitant]
     Indication: HEART RATE ABNORMAL

REACTIONS (1)
  - ISCHAEMIC STROKE [None]
